FAERS Safety Report 18442809 (Version 2)
Quarter: 2020Q4

REPORT INFORMATION
  Report Type: Report from Study
  Country: None (occurrence: NL)
  Receive Date: 20201029
  Receipt Date: 20201031
  Transmission Date: 20210114
  Serious: Yes (Death, Hospitalization)
  Sender: FDA-Public Use
  Company Number: NL-ABBVIE-16K-114-1720232-00

PATIENT
  Age: 77 Year
  Sex: Male
  Weight: 69.5 kg

DRUGS (6)
  1. DUODOPA [Suspect]
     Active Substance: CARBIDOPA\LEVODOPA
     Dosage: MD 3.5,?CD 2.9,?ED 3.0,?16 HOUR ADMINISTRATION.
     Route: 050
  2. SENNOSIDES A + B (X-PRAEP) [Concomitant]
     Indication: ABNORMAL FAECES
  3. DUODOPA [Suspect]
     Active Substance: CARBIDOPA\LEVODOPA
     Dosage: OD 3.5 CD 2.6 ED 3.0
     Route: 050
  4. DUODOPA [Suspect]
     Active Substance: CARBIDOPA\LEVODOPA
     Indication: PARKINSON^S DISEASE
     Dosage: MD: 3.5, CD: 3.0, ED: 3.0.
     Route: 050
     Dates: start: 20141024
  5. DUODOPA [Suspect]
     Active Substance: CARBIDOPA\LEVODOPA
     Route: 050
  6. DUODOPA [Suspect]
     Active Substance: CARBIDOPA\LEVODOPA
     Dosage: OD 3,5ML CD 2,9ML/UUR ED 3,0ML
     Route: 050

REACTIONS (68)
  - Feeling abnormal [Not Recovered/Not Resolved]
  - Stress [Unknown]
  - Middle insomnia [Unknown]
  - Poor quality sleep [Recovered/Resolved]
  - Muscle rigidity [Not Recovered/Not Resolved]
  - Abnormal dreams [Not Recovered/Not Resolved]
  - Aggression [Not Recovered/Not Resolved]
  - Balance disorder [Not Recovered/Not Resolved]
  - Stoma site pain [Recovered/Resolved]
  - Musculoskeletal stiffness [Not Recovered/Not Resolved]
  - Cognitive disorder [Not Recovered/Not Resolved]
  - Restlessness [Not Recovered/Not Resolved]
  - Hypokinesia [Unknown]
  - Pain in extremity [Not Recovered/Not Resolved]
  - Fall [Recovered/Resolved]
  - Decreased appetite [Not Recovered/Not Resolved]
  - Disorientation [Not Recovered/Not Resolved]
  - Device occlusion [Unknown]
  - Freezing phenomenon [Not Recovered/Not Resolved]
  - Mobility decreased [Not Recovered/Not Resolved]
  - Speech disorder [Not Recovered/Not Resolved]
  - Restlessness [Recovered/Resolved]
  - Upper limb fracture [Not Recovered/Not Resolved]
  - Device loosening [Unknown]
  - Decreased appetite [Recovered/Resolved]
  - Pain [Not Recovered/Not Resolved]
  - Freezing phenomenon [Recovered/Resolved]
  - Nausea [Not Recovered/Not Resolved]
  - On and off phenomenon [Not Recovered/Not Resolved]
  - Unevaluable event [Unknown]
  - Device kink [Unknown]
  - Gait disturbance [Not Recovered/Not Resolved]
  - Flatulence [Not Recovered/Not Resolved]
  - Somnolence [Not Recovered/Not Resolved]
  - Device kink [Recovered/Resolved]
  - Hospitalisation [Unknown]
  - Arthralgia [Recovering/Resolving]
  - Device use error [Not Recovered/Not Resolved]
  - Memory impairment [Not Recovered/Not Resolved]
  - Patient elopement [Not Recovered/Not Resolved]
  - Irritability [Unknown]
  - Underdose [Unknown]
  - Weight decreased [Not Recovered/Not Resolved]
  - Dyskinesia [Recovered/Resolved]
  - On and off phenomenon [Recovered/Resolved]
  - Constipation [Recovered/Resolved]
  - Agitation [Unknown]
  - Intentional device misuse [Not Recovered/Not Resolved]
  - Product use issue [Not Recovered/Not Resolved]
  - Wheelchair user [Not Recovered/Not Resolved]
  - Faeces hard [Recovered/Resolved]
  - General physical health deterioration [Not Recovered/Not Resolved]
  - Weight decreased [Recovered/Resolved]
  - Malaise [Not Recovered/Not Resolved]
  - Hyperhidrosis [Not Recovered/Not Resolved]
  - Tremor [Recovered/Resolved]
  - Fall [Not Recovered/Not Resolved]
  - Bradykinesia [Not Recovered/Not Resolved]
  - Death [Fatal]
  - Behaviour disorder [Unknown]
  - Hypophagia [Unknown]
  - Appetite disorder [Recovered/Resolved]
  - Fall [Not Recovered/Not Resolved]
  - Hallucination, visual [Not Recovered/Not Resolved]
  - Initial insomnia [Recovered/Resolved]
  - Insomnia [Recovered/Resolved]
  - Confusional state [Unknown]
  - Dyskinesia [Not Recovered/Not Resolved]

NARRATIVE: CASE EVENT DATE: 20160830
